FAERS Safety Report 5117129-5 (Version None)
Quarter: 2006Q3

REPORT INFORMATION
  Report Type: 
  Country: None (occurrence: None)
  Receive Date: 20060929
  Receipt Date: 20060712
  Transmission Date: 20061208
  Serious: Yes (Disabling)
  Sender: FDA-Public Use
  Company Number: NO-ABBOTT-06P-122-0338064-00

PATIENT
  Sex: Male

DRUGS (4)
  1. HUMIRA [Suspect]
     Indication: ANKYLOSING SPONDYLITIS
     Route: 058
  2. REMICADE [Suspect]
     Indication: ANKYLOSING SPONDYLITIS
  3. ENBREL [Suspect]
     Indication: ANKYLOSING SPONDYLITIS
     Dates: end: 20050101
  4. ALENDRONATE SODIUM [Concomitant]
     Indication: OSTEOPOROSIS

REACTIONS (1)
  - VASCULAR ENCEPHALOPATHY [None]
